FAERS Safety Report 7776409-5 (Version None)
Quarter: 2011Q3

REPORT INFORMATION
  Report Type: 
  Country: None (occurrence: None)
  Receive Date: 20110926
  Receipt Date: 20110920
  Transmission Date: 20111222
  Serious: Yes (Other)
  Sender: FDA-Public Use
  Company Number: BR-PFIZER INC-2011223129

PATIENT
  Age: 43 Year
  Sex: Female
  Weight: 58 kg

DRUGS (2)
  1. DEPO-PROVERA [Suspect]
     Indication: CONTRACEPTION
     Dosage: UNK
     Route: 030
     Dates: start: 20060101, end: 20101201
  2. ATENOLOL [Concomitant]
     Indication: HYPERTENSION
     Dosage: UNK, 1X/DAY
     Dates: start: 20010101

REACTIONS (6)
  - PREMENSTRUAL SYNDROME [None]
  - WEIGHT INCREASED [None]
  - CANDIDIASIS [None]
  - BLOOD PRESSURE INCREASED [None]
  - ANXIETY [None]
  - AGITATION [None]
